FAERS Safety Report 5795610-3 (Version None)
Quarter: 2008Q2

REPORT INFORMATION
  Report Type: 
  Country: None (occurrence: None)
  Receive Date: 20080630
  Receipt Date: 20080618
  Transmission Date: 20081010
  Serious: Yes (Other)
  Sender: FDA-Public Use
  Company Number: US-PFIZER INC-2008052304

PATIENT
  Sex: Female
  Weight: 105.2 kg

DRUGS (12)
  1. CHANTIX [Suspect]
     Indication: SMOKING CESSATION THERAPY
     Dates: start: 20080610, end: 20080618
  2. BUPRENORPHINE HYDROCHLORIDE/NALOXONE HYDROCHLORIDE [Concomitant]
     Indication: DEPENDENCE
  3. LIPITOR [Concomitant]
  4. METFORMIN [Concomitant]
  5. BYETTA [Concomitant]
  6. PAXIL [Concomitant]
  7. VITAMINS [Concomitant]
  8. CARDIOVASCULAR SYSTEM DRUGS [Concomitant]
  9. NEXIUM [Concomitant]
  10. ASPIRIN [Concomitant]
  11. PILOCARPINE [Concomitant]
  12. HERBAL PREPARATION [Concomitant]

REACTIONS (8)
  - ANXIETY [None]
  - BLOOD GLUCOSE DECREASED [None]
  - CONSTIPATION [None]
  - DEPRESSION [None]
  - DRUG INEFFECTIVE [None]
  - NAUSEA [None]
  - NIGHTMARE [None]
  - THIRST [None]
